FAERS Safety Report 5352461-1 (Version None)
Quarter: 2007Q2

REPORT INFORMATION
  Report Type: 
  Country: None (occurrence: None)
  Receive Date: 20070611
  Receipt Date: 20070606
  Transmission Date: 20071010
  Serious: Yes (Hospitalization)
  Sender: FDA-Public Use
  Company Number: A0654752A

PATIENT
  Age: 68 Year
  Sex: Female
  Weight: 70 kg

DRUGS (7)
  1. SERETIDE [Suspect]
     Indication: ASTHMA
     Dates: start: 20031001, end: 20070508
  2. SERETIDE [Suspect]
     Dates: start: 20070508, end: 20070529
  3. ATENOLOL [Concomitant]
     Dates: start: 20060601, end: 20070508
  4. DILACORON [Concomitant]
     Dates: start: 20070528
  5. VYTORIN [Concomitant]
     Dates: start: 20050601
  6. AZITHROMYCIN [Concomitant]
     Dates: start: 20070530, end: 20070604
  7. PREDNISOLONE [Concomitant]
     Dates: start: 20070530, end: 20070604

REACTIONS (6)
  - ASTHMATIC CRISIS [None]
  - DRUG INEFFECTIVE [None]
  - DYSPHONIA [None]
  - DYSPNOEA [None]
  - INFLUENZA [None]
  - TACHYCARDIA [None]
